FAERS Safety Report 6972605-5 (Version None)
Quarter: 2010Q3

REPORT INFORMATION
  Report Type: 
  Country: None (occurrence: None)
  Receive Date: 20100909
  Receipt Date: 20100907
  Transmission Date: 20110219
  Serious: Yes (Death, Hospitalization, Other)
  Sender: FDA-Public Use
  Company Number: KR-BAYER-201038615GPV

PATIENT
  Age: 54 Year
  Sex: Male

DRUGS (4)
  1. ASPIRIN [Suspect]
     Indication: ANTIPLATELET THERAPY
     Dosage: TOTAL DAILY DOSE: 100 MG
     Dates: start: 20030101
  2. CLOPIDOGREL [Suspect]
     Indication: ANTIPLATELET THERAPY
     Dosage: TOTAL DAILY DOSE: 75 MG
     Dates: start: 20030101
  3. CILOSTAZOL [Suspect]
     Indication: ANTIPLATELET THERAPY
     Dosage: TOTAL DAILY DOSE: 200 MG
     Dates: start: 20080701
  4. WARFARIN SODIUM [Suspect]
     Indication: THROMBOSIS IN DEVICE
     Route: 048
     Dates: start: 20080801

REACTIONS (5)
  - DISSEMINATED INTRAVASCULAR COAGULATION [None]
  - METABOLIC ACIDOSIS [None]
  - MULTI-ORGAN FAILURE [None]
  - RENAL HAEMORRHAGE [None]
  - THROMBOSIS IN DEVICE [None]
